FAERS Safety Report 16529066 (Version 3)
Quarter: 2019Q3

REPORT INFORMATION
  Report Type: Report from Study
  Country: CO (occurrence: CO)
  Receive Date: 20190703
  Receipt Date: 20190906
  Transmission Date: 20191004
  Serious: Yes (Hospitalization)
  Sender: FDA-Public Use
  Company Number: CO-INCYTE CORPORATION-2019IN006486

PATIENT

DRUGS (3)
  1. JAKAVI [Suspect]
     Active Substance: RUXOLITINIB
     Dosage: UNK
     Route: 048
  2. JAKAVI [Suspect]
     Active Substance: RUXOLITINIB
     Dosage: 30 MG, QD
     Route: 048
  3. JAKAVI [Suspect]
     Active Substance: RUXOLITINIB
     Indication: MYELOFIBROSIS
     Dosage: 15 MG, QD
     Route: 048

REACTIONS (8)
  - Nasopharyngitis [Unknown]
  - Feeling abnormal [Recovering/Resolving]
  - Inappropriate schedule of product administration [Unknown]
  - Lung disorder [Recovering/Resolving]
  - Asthenia [Unknown]
  - Intracranial mass [Recovering/Resolving]
  - Cerebral thrombosis [Recovering/Resolving]
  - Platelet count decreased [Recovering/Resolving]
